FAERS Safety Report 9054269 (Version 1)
Quarter: 2013Q1

REPORT INFORMATION
  Report Type: Spontaneous
  Country: GB (occurrence: GB)
  Receive Date: 20130208
  Receipt Date: 20130208
  Transmission Date: 20140127
  Serious: Yes (Life-Threatening, Hospitalization)
  Sender: FDA-Public Use
  Company Number: GB-GLAXOSMITHKLINE-B0863402A

PATIENT
  Age: 30 Year
  Sex: Male

DRUGS (7)
  1. LAMOTRIGINE [Suspect]
     Indication: GASTRIC DISORDER
     Dosage: 100MG PER DAY
     Route: 048
  2. HYOSCINE [Suspect]
     Indication: SALIVARY HYPERSECRETION
     Dosage: 90MCG PER DAY
     Route: 048
  3. LANSOPRAZOLE [Suspect]
     Indication: PEPTIC ULCER
     Dosage: 30MG PER DAY
     Route: 048
  4. INSULIN [Suspect]
     Indication: DIABETES MELLITUS
     Route: 058
  5. CLOZARIL [Suspect]
     Indication: SCHIZOPHRENIA
     Route: 048
     Dates: start: 20010701
  6. PARACETAMOL [Concomitant]
     Indication: PAIN
     Route: 048
  7. CLARITHROMYCIN [Concomitant]
     Route: 048

REACTIONS (10)
  - Type 1 diabetes mellitus [Not Recovered/Not Resolved]
  - Diabetic ketoacidosis [Recovering/Resolving]
  - Pneumonia [Recovering/Resolving]
  - Sepsis [Recovering/Resolving]
  - Neutrophil count increased [Unknown]
  - General physical health deterioration [Unknown]
  - Hypophagia [Unknown]
  - Chest discomfort [Recovering/Resolving]
  - Diarrhoea [Unknown]
  - White blood cell count increased [Unknown]
